FAERS Safety Report 5103421-7 (Version None)
Quarter: 2006Q3

REPORT INFORMATION
  Report Type: 
  Country: None (occurrence: None)
  Receive Date: 20060913
  Receipt Date: 20060907
  Transmission Date: 20061208
  Serious: Yes (Other)
  Sender: FDA-Public Use
  Company Number: JP-BRISTOL-MYERS SQUIBB COMPANY-13502620

PATIENT
  Age: 67 Year
  Sex: Male

DRUGS (3)
  1. BRIPLATIN [Suspect]
     Indication: LUNG ADENOCARCINOMA
     Route: 042
  2. IRINOTECAN HCL [Concomitant]
  3. RADIOTHERAPY [Concomitant]

REACTIONS (1)
  - INTERSTITIAL LUNG DISEASE [None]
